FAERS Safety Report 11687693 (Version 4)
Quarter: 2015Q4

REPORT INFORMATION
  Report Type: Report from Study
  Country: FR (occurrence: FR)
  Receive Date: 20151030
  Receipt Date: 20151230
  Transmission Date: 20160304
  Serious: Yes (Other)
  Sender: FDA-Public Use
  Company Number: FR-JNJFOC-20151015480

PATIENT
  Age: 25 Year
  Sex: Male
  Weight: 58 kg

DRUGS (34)
  1. LEVOFLOXACINE [Suspect]
     Active Substance: LEVOFLOXACIN
     Indication: ANTIBIOTIC PROPHYLAXIS
     Route: 065
  2. AMIKACIN [Suspect]
     Active Substance: AMIKACIN
     Indication: ANTIBIOTIC PROPHYLAXIS
     Route: 065
  3. PYRAZINAMIDE. [Suspect]
     Active Substance: PYRAZINAMIDE
     Indication: ANTIBIOTIC PROPHYLAXIS
     Route: 065
  4. STILNOX [Concomitant]
     Active Substance: ZOLPIDEM TARTRATE
     Route: 065
  5. GRANUPAS [Suspect]
     Active Substance: AMINOSALICYLIC ACID
     Indication: ANTIBIOTIC PROPHYLAXIS
     Route: 065
  6. CYCLOSERINE. [Suspect]
     Active Substance: CYCLOSERINE
     Indication: ANTIBIOTIC PROPHYLAXIS
     Route: 065
  7. TARDYFERON [Concomitant]
     Active Substance: FERROUS SULFATE\FOLIC ACID
     Route: 065
  8. LYSOPAINE [Concomitant]
     Active Substance: CETYLPYRIDINIUM CHLORIDE\LYSOZYME HYDROCHLORIDE
     Route: 065
  9. SERETIDE [Concomitant]
     Active Substance: FLUTICASONE FUROATE\SALMETEROL XINAFOATE
     Route: 065
  10. DAFALGAN [Concomitant]
     Active Substance: ACETAMINOPHEN
     Route: 065
  11. LINEZOLID. [Suspect]
     Active Substance: LINEZOLID
     Indication: ANTIBIOTIC PROPHYLAXIS
     Route: 065
  12. MAGNESPASMYL [Concomitant]
     Route: 065
  13. PRINCI-B [Concomitant]
     Route: 065
  14. TMC207 [Suspect]
     Active Substance: BEDAQUILINE
     Indication: TUBERCULOSIS
     Dates: start: 20150314
  15. LEVOFLOXACINE [Suspect]
     Active Substance: LEVOFLOXACIN
     Indication: ANTIBIOTIC PROPHYLAXIS
     Route: 065
  16. AMINOSALICYLATE SODIUM [Suspect]
     Active Substance: AMINOSALICYLATE SODIUM
     Indication: ANTIBIOTIC PROPHYLAXIS
     Route: 065
  17. PRIMPERAN [Concomitant]
     Active Substance: METOCLOPRAMIDE HYDROCHLORIDE
     Route: 065
  18. TMC207 [Suspect]
     Active Substance: BEDAQUILINE
     Indication: TUBERCULOSIS
     Dates: start: 20150323
  19. LINEZOLID. [Suspect]
     Active Substance: LINEZOLID
     Indication: ANTIBIOTIC PROPHYLAXIS
     Route: 065
  20. AMIKACIN [Suspect]
     Active Substance: AMIKACIN
     Indication: ANTIBIOTIC PROPHYLAXIS
     Route: 065
  21. CYCLOSERINE. [Suspect]
     Active Substance: CYCLOSERINE
     Indication: ANTIBIOTIC PROPHYLAXIS
     Route: 065
  22. FOLIC ACID. [Concomitant]
     Active Substance: FOLIC ACID
     Route: 065
  23. SPASFON LYOC [Concomitant]
     Active Substance: PHLOROGLUCINOL
     Route: 065
  24. FRESUBIN [Concomitant]
     Active Substance: AMINO ACIDS\DEXTROSE\ELECTROLYTES NOS\SOYBEAN OIL\VITAMINS
     Route: 065
  25. VENTOLINE [Concomitant]
     Active Substance: ALBUTEROL
     Route: 065
  26. CLOFAZIMINE [Suspect]
     Active Substance: CLOFAZIMINE
     Indication: ANTIBIOTIC PROPHYLAXIS
     Route: 065
     Dates: start: 20150724, end: 20150909
  27. TRECATOR [Suspect]
     Active Substance: ETHIONAMIDE
     Indication: ANTIBIOTIC PROPHYLAXIS
     Route: 065
  28. CETORNAN [Concomitant]
     Route: 065
  29. DIMETANE [Concomitant]
     Active Substance: BROMPHENIRAMINE MALEATE
     Route: 065
  30. RANIPLEX [Concomitant]
     Active Substance: RANITIDINE HYDROCHLORIDE
     Route: 065
  31. AMINOSALICYLATE SODIUM [Suspect]
     Active Substance: AMINOSALICYLATE SODIUM
     Indication: ANTIBIOTIC PROPHYLAXIS
     Dosage: 1 BOTTLE
     Route: 065
  32. IZILOX [Suspect]
     Active Substance: MOXIFLOXACIN HYDROCHLORIDE
     Indication: ANTIBIOTIC PROPHYLAXIS
     Route: 065
  33. PASER [Suspect]
     Active Substance: AMINOSALICYLIC ACID
     Indication: ANTIBIOTIC PROPHYLAXIS
     Route: 065
  34. BECILAN [Concomitant]
     Active Substance: PYRIDOXINE
     Route: 065

REACTIONS (6)
  - Tuberculosis [Unknown]
  - Polyneuropathy [Unknown]
  - Electrocardiogram QT prolonged [Recovered/Resolved]
  - Electrocardiogram repolarisation abnormality [Unknown]
  - Hypotension [Unknown]
  - Malaise [Unknown]

NARRATIVE: CASE EVENT DATE: 201505
